FAERS Safety Report 9419419 (Version 1)
Quarter: 2013Q3

REPORT INFORMATION
  Report Type: Spontaneous
  Country: PA (occurrence: PA)
  Receive Date: 20130725
  Receipt Date: 20130725
  Transmission Date: 20140515
  Serious: Yes (Hospitalization)
  Sender: FDA-Public Use
  Company Number: PA-PFIZER INC-2013217217

PATIENT
  Age: 9 Year
  Sex: Male

DRUGS (2)
  1. ALTRULINE [Suspect]
     Dosage: 25 MG, UNK
     Dates: start: 20130618, end: 201307
  2. ALTRULINE [Suspect]
     Dosage: 50 MG, UNK
     Dates: start: 201307, end: 20130703

REACTIONS (4)
  - Aggression [Unknown]
  - School refusal [Unknown]
  - Inappropriate affect [Unknown]
  - Paranoia [Unknown]
